FAERS Safety Report 5931629-7 (Version None)
Quarter: 2008Q4

REPORT INFORMATION
  Report Type: 
  Country: None (occurrence: None)
  Receive Date: 20081027
  Receipt Date: 20081017
  Transmission Date: 20090506
  Serious: Yes (Disabling)
  Sender: FDA-Public Use
  Company Number: JP-ASTRAZENECA-2008AP07177

PATIENT
  Age: 27 Year
  Sex: Female
  Weight: 41 kg

DRUGS (15)
  1. NAROPIN [Suspect]
     Indication: EPIDURAL ANAESTHESIA
     Route: 008
     Dates: start: 20080811, end: 20080811
  2. NAROPIN [Suspect]
     Indication: ANALGESIA
     Route: 008
     Dates: start: 20080811, end: 20080811
  3. NAROPIN [Suspect]
     Dosage: 3 ML OF 0.75% ANAPEINE
     Route: 008
     Dates: start: 20080811, end: 20080811
  4. NAROPIN [Suspect]
     Dosage: 3 ML OF 0.75% ANAPEINE
     Route: 008
     Dates: start: 20080811, end: 20080811
  5. NAROPIN [Suspect]
     Dosage: MIXTURE OF 100ML ANAPEINE (2MG/ML) AND 10 ML FENTANYL WAS GIVEN 3ML/HR
     Route: 008
     Dates: start: 20080811, end: 20080811
  6. NAROPIN [Suspect]
     Dosage: MIXTURE OF 100ML ANAPEINE (2MG/ML) AND 10 ML FENTANYL WAS GIVEN 3ML/HR
     Route: 008
     Dates: start: 20080811, end: 20080811
  7. NAROPIN [Suspect]
     Dosage: MIXTURE OF 100ML ANAPEINE (2MG/ML) AND 10 ML FENTANYL WAS GIVEN 2ML/HR FOR 3 DAYS
     Route: 008
     Dates: start: 20080811, end: 20080813
  8. NAROPIN [Suspect]
     Dosage: MIXTURE OF 100ML ANAPEINE (2MG/ML) AND 10 ML FENTANYL WAS GIVEN 2ML/HR FOR 3 DAYS
     Route: 008
     Dates: start: 20080811, end: 20080813
  9. XYLOCAINE W/ EPINEPHRINE [Suspect]
     Indication: EPIDURAL TEST DOSE
     Route: 008
     Dates: start: 20080811, end: 20080811
  10. FENTANYL CITRATE [Concomitant]
     Indication: ANALGESIA
     Dosage: THE MIXTURE OF 100 ML ANAPEINE AND 10 ML OF FENTANYL WAS ADMINISTERED AT 2 TO 3 ML/H FOR 3 DAYS.
     Route: 008
     Dates: start: 20080811, end: 20080813
  11. FENTANYL CITRATE [Concomitant]
     Indication: GENERAL ANAESTHESIA
     Dosage: THE MIXTURE OF 100 ML ANAPEINE AND 10 ML OF FENTANYL WAS ADMINISTERED AT 2 TO 3 ML/H FOR 3 DAYS.
     Route: 008
     Dates: start: 20080811, end: 20080813
  12. FENTANYL CITRATE [Concomitant]
     Route: 055
     Dates: start: 20080811, end: 20080811
  13. FENTANYL CITRATE [Concomitant]
     Route: 055
     Dates: start: 20080811, end: 20080811
  14. SEVOFLURANE [Concomitant]
     Indication: GENERAL ANAESTHESIA
     Dosage: DOSE UNKNOWN
     Route: 055
     Dates: start: 20080811, end: 20080811
  15. OXYGEN [Concomitant]
     Indication: GENERAL ANAESTHESIA
     Dosage: DOSE UNKNOWN
     Route: 055
     Dates: start: 20080811, end: 20080811

REACTIONS (1)
  - SENSORIMOTOR DISORDER [None]
